FAERS Safety Report 4386202-1 (Version None)
Quarter: 2004Q2

REPORT INFORMATION
  Report Type: 
  Country: None (occurrence: None)
  Receive Date: 20040628
  Receipt Date: 20040628
  Transmission Date: 20050107
  Serious: No
  Sender: FDA-Public Use
  Company Number: None

PATIENT
  Age: 74 Year
  Sex: Male

DRUGS (1)
  1. FELODIPINE [Suspect]
     Dosage: 10 MG QD

REACTIONS (3)
  - GINGIVAL SWELLING [None]
  - PRURITUS [None]
  - SWELLING FACE [None]
